FAERS Safety Report 7313254-9 (Version None)
Quarter: 2011Q1

REPORT INFORMATION
  Report Type: 
  Country: None (occurrence: None)
  Receive Date: 20110215
  Receipt Date: 20110215
  Transmission Date: 20110831
  Serious: Yes (Hospitalization)
  Sender: FDA-Public Use
  Company Number: None

PATIENT
  Age: 57 Year
  Sex: Female
  Weight: 104 kg

DRUGS (2)
  1. PIPERACILLIN AND TAZOBACTAM [Suspect]
     Indication: INFECTION
     Dosage: IV
     Route: 042
     Dates: start: 20101208, end: 20110108
  2. DAPTOMYCIN [Suspect]
     Indication: INFECTION
     Dosage: 600 MG EVERY DAY IV
     Route: 042
     Dates: start: 20101222, end: 20110109

REACTIONS (11)
  - EOSINOPHILIA [None]
  - CHILLS [None]
  - NAUSEA [None]
  - PNEUMONIA [None]
  - COUGH [None]
  - PYREXIA [None]
  - LEUKOPENIA [None]
  - NEUTROPENIA [None]
  - VOMITING [None]
  - HAEMORRHAGE [None]
  - THROMBOCYTOPENIA [None]
